FAERS Safety Report 22632343 (Version 2)
Quarter: 2023Q2

REPORT INFORMATION
  Report Type: Report from Study
  Country: BR (occurrence: BR)
  Receive Date: 20230623
  Receipt Date: 20230623
  Transmission Date: 20230722
  Serious: Yes (Other)
  Sender: FDA-Public Use
  Company Number: CA-002147023-NVSC2023BR141035

PATIENT
  Sex: Female

DRUGS (2)
  1. AMLODIPINE\VALSARTAN [Suspect]
     Active Substance: AMLODIPINE\VALSARTAN
     Indication: Blood pressure abnormal
     Dosage: UNK (17 YEARS AGO) (160 + 5 AMLODIPINE)
     Route: 065
  2. CAPTOPRIL [Concomitant]
     Active Substance: CAPTOPRIL
     Indication: Product used for unknown indication
     Dosage: 50
     Route: 065

REACTIONS (3)
  - Diabetes mellitus [Unknown]
  - Abscess [Unknown]
  - Swelling face [Unknown]
